FAERS Safety Report 13405835 (Version 1)
Quarter: 2017Q2

REPORT INFORMATION
  Report Type: Spontaneous
  Country: PA (occurrence: PA)
  Receive Date: 20170405
  Receipt Date: 20170405
  Transmission Date: 20170830
  Serious: Yes (Other)
  Sender: FDA-Public Use
  Company Number: PA-009507513-1703PAN013865

PATIENT
  Age: 34 Year
  Sex: Female

DRUGS (1)
  1. NUVARING [Suspect]
     Active Substance: ETHINYL ESTRADIOL\ETONOGESTREL
     Indication: CONTRACEPTION
     Dosage: 1 RING, UNK
     Route: 067

REACTIONS (3)
  - Vulvovaginal pain [Unknown]
  - Hypersensitivity [Unknown]
  - Cyst [Unknown]

NARRATIVE: CASE EVENT DATE: 201607
